FAERS Safety Report 23024627 (Version 1)
Quarter: 2023Q4

REPORT INFORMATION
  Report Type: Spontaneous
  Country: US (occurrence: US)
  Receive Date: 20231004
  Receipt Date: 20231004
  Transmission Date: 20240110
  Serious: No
  Sender: FDA-Public Use
  Company Number: US-PADAGIS-2023PAD01388

PATIENT

DRUGS (1)
  1. MUPIROCIN [Suspect]
     Active Substance: MUPIROCIN
     Indication: Erythema
     Dosage: UNK, TWICE A DAY OR THRICE A DAY
     Route: 065

REACTIONS (3)
  - Therapy partial responder [Unknown]
  - Product use issue [Unknown]
  - Product use in unapproved indication [Unknown]
